FAERS Safety Report 16637897 (Version 1)
Quarter: 2019Q3

REPORT INFORMATION
  Report Type: Spontaneous
  Country: US (occurrence: US)
  Receive Date: 20190726
  Receipt Date: 20190726
  Transmission Date: 20191004
  Serious: Yes (Hospitalization)
  Sender: FDA-Public Use
  Company Number: None

PATIENT
  Age: 54 Year
  Sex: Male

DRUGS (11)
  1. DIAZEPAM. [Concomitant]
     Active Substance: DIAZEPAM
  2. LOSARTAN. [Concomitant]
     Active Substance: LOSARTAN
  3. MELOXICAM. [Concomitant]
     Active Substance: MELOXICAM
  4. ANDROGEL [Concomitant]
     Active Substance: TESTOSTERONE
  5. SIMVASTATIN. [Concomitant]
     Active Substance: SIMVASTATIN
  6. TEMAZEPAM. [Concomitant]
     Active Substance: TEMAZEPAM
  7. GABAPENTIN. [Concomitant]
     Active Substance: GABAPENTIN
  8. LEVOTHYROXINE. [Concomitant]
     Active Substance: LEVOTHYROXINE
  9. CIMZIA [Suspect]
     Active Substance: CERTOLIZUMAB PEGOL
     Indication: RHEUMATOID ARTHRITIS
     Dosage: ?          OTHER FREQUENCY:EVERY 2 WEEKS;?
     Route: 058
     Dates: start: 20161014
  10. LEFLUNOMIDE. [Concomitant]
     Active Substance: LEFLUNOMIDE
  11. OMEPRAZOLE. [Concomitant]
     Active Substance: OMEPRAZOLE

REACTIONS (3)
  - Surgery [None]
  - Rheumatoid arthritis [None]
  - Therapy cessation [None]

NARRATIVE: CASE EVENT DATE: 20190625
